FAERS Safety Report 8772785 (Version 3)
Quarter: 2013Q2

REPORT INFORMATION
  Report Type: Report from Study
  Country: GB (occurrence: GB)
  Receive Date: 20120907
  Receipt Date: 20130524
  Transmission Date: 20140414
  Serious: Yes (Hospitalization)
  Sender: FDA-Public Use
  Company Number: GB-PFIZER INC-2012203587

PATIENT
  Age: 47 Year
  Sex: Male

DRUGS (9)
  1. GEMCITABINE HYDROCHLORIDE [Suspect]
     Indication: PANCREATIC CARCINOMA
     Dosage: 2052 MG, CYCLIC
     Route: 042
     Dates: start: 20120525
  2. IMM-101 [Suspect]
     Indication: PANCREATIC CARCINOMA
     Dosage: 1 MG, CYCLIC
     Route: 023
     Dates: start: 20120525, end: 20120621
  3. BISACODYL [Concomitant]
     Indication: CONSTIPATION
     Dosage: 5 MG, UNK
     Route: 048
  4. METOCLOPRAMIDE [Concomitant]
     Indication: NAUSEA
     Dosage: 10 MG, 3X/DAY
     Route: 048
  5. MST CONTINUS [Concomitant]
     Indication: PAIN
     Dosage: 30 MG, 2X/DAY
     Route: 048
  6. OMEPRAZOLE [Concomitant]
     Indication: DUODENOGASTRIC REFLUX
     Dosage: 20 MG, 2X/DAY
     Route: 048
  7. ORAMORPH [Concomitant]
     Indication: PAIN
     Dosage: 5 ML, AS NEEDED
     Route: 048
  8. BUSCOPAN [Concomitant]
     Indication: ABDOMINAL PAIN
     Dosage: 20 MG, 2X/DAY
     Route: 048
     Dates: start: 20120516
  9. DOCUSATE [Concomitant]
     Indication: CONSTIPATION
     Dosage: 100 MG, 2X/DAY
     Route: 048
     Dates: start: 201206

REACTIONS (8)
  - Cerebellar infarction [Recovered/Resolved with Sequelae]
  - Dizziness [Recovered/Resolved]
  - Urinary tract infection [None]
  - Vomiting [None]
  - Hemiparesis [None]
  - Coordination abnormal [None]
  - Gait disturbance [None]
  - Dysarthria [None]
